FAERS Safety Report 6807452-8 (Version None)
Quarter: 2010Q2

REPORT INFORMATION
  Report Type: 
  Country: None (occurrence: None)
  Receive Date: 20100625
  Receipt Date: 20100610
  Transmission Date: 20101027
  Serious: Yes (Life-Threatening)
  Sender: FDA-Public Use
  Company Number: AUR-APU-2010-01125

PATIENT
  Sex: Female

DRUGS (2)
  1. CEFUROXIME [Suspect]
     Dosage: 1 TABLET - ORAL
     Route: 048
  2. CEFUROXIME [Suspect]
     Dosage: 2 TABLETS - ORAL
     Route: 048

REACTIONS (3)
  - CHOKING SENSATION [None]
  - FOREIGN BODY [None]
  - PRODUCT SOLUBILITY ABNORMAL [None]
